FAERS Safety Report 12849711 (Version 1)
Quarter: 2016Q4

REPORT INFORMATION
  Report Type: Spontaneous
  Country: US (occurrence: US)
  Receive Date: 20161014
  Receipt Date: 20161014
  Transmission Date: 20170207
  Serious: No
  Sender: FDA-Public Use
  Company Number: US-ROCHE-1808158

PATIENT
  Sex: Male

DRUGS (6)
  1. DILTIAZEM HCL [Concomitant]
     Active Substance: DILTIAZEM HYDROCHLORIDE
  2. DISOPYRAMIDE PHOSPHATE. [Concomitant]
     Active Substance: DISOPYRAMIDE PHOSPHATE
  3. ALLOPURINOL. [Concomitant]
     Active Substance: ALLOPURINOL
     Route: 065
  4. FUROSEMIDE. [Concomitant]
     Active Substance: FUROSEMIDE
  5. GLIPIZIDE. [Concomitant]
     Active Substance: GLIPIZIDE
  6. ESBRIET [Suspect]
     Active Substance: PIRFENIDONE
     Indication: OVERWEIGHT
     Route: 048
     Dates: start: 20160713

REACTIONS (2)
  - Diarrhoea [Unknown]
  - Asthenia [Unknown]
